FAERS Safety Report 14700414 (Version 3)
Quarter: 2019Q1

REPORT INFORMATION
  Report Type: Spontaneous
  Country: US (occurrence: US)
  Receive Date: 20180330
  Receipt Date: 20190117
  Transmission Date: 20190417
  Serious: Yes (Other)
  Sender: FDA-Public Use
  Company Number: US-JNJFOC-20180332508

PATIENT
  Sex: Female
  Weight: 78.47 kg

DRUGS (2)
  1. ORTHO TRI CYCLEN LO [Suspect]
     Active Substance: ETHINYL ESTRADIOL\NORGESTIMATE
     Indication: CONTRACEPTION
     Dosage: AT 11 AM
     Route: 048
     Dates: start: 201801
  2. ORTHO TRI CYCLEN LO [Suspect]
     Active Substance: ETHINYL ESTRADIOL\NORGESTIMATE
     Indication: CONTRACEPTION
     Dosage: AT 11 AM
     Route: 048
     Dates: start: 2014, end: 2015

REACTIONS (6)
  - Pregnancy on oral contraceptive [Unknown]
  - Breast disorder [Unknown]
  - Breast tenderness [Unknown]
  - Abortion spontaneous [Unknown]
  - Breast discomfort [Unknown]
  - Exposure during pregnancy [Unknown]

NARRATIVE: CASE EVENT DATE: 2015
